FAERS Safety Report 12280220 (Version 2)
Quarter: 2016Q2

REPORT INFORMATION
  Report Type: Spontaneous
  Country: FR (occurrence: FR)
  Receive Date: 20160419
  Receipt Date: 20160509
  Transmission Date: 20160815
  Serious: Yes (Death, Hospitalization)
  Sender: FDA-Public Use
  Company Number: FR-AMGEN-FRASP2016048922

PATIENT
  Age: 54 Year
  Sex: Female

DRUGS (6)
  1. ABILIFY [Suspect]
     Active Substance: ARIPIPRAZOLE
     Indication: BIPOLAR DISORDER
     Dosage: UNK
     Route: 048
  2. HEPTAMYL [Concomitant]
     Active Substance: HEPTAMINOL HYDROCHLORIDE
     Dosage: UNK
  3. PROCORALAN [Suspect]
     Active Substance: IVABRADINE
     Indication: PRODUCT USED FOR UNKNOWN INDICATION
     Dosage: UNK
     Route: 048
     Dates: end: 20150104
  4. NOZINAN [Suspect]
     Active Substance: LEVOMEPROMAZINE
     Indication: BIPOLAR DISORDER
     Dosage: UNK
     Route: 048
     Dates: end: 20150104
  5. LEXOMIL [Concomitant]
     Active Substance: BROMAZEPAM
     Dosage: UNK
  6. SYMBICORT [Concomitant]
     Active Substance: BUDESONIDE\FORMOTEROL FUMARATE DIHYDRATE
     Dosage: UNK

REACTIONS (2)
  - Cardio-respiratory arrest [Fatal]
  - Arrhythmia [Fatal]

NARRATIVE: CASE EVENT DATE: 20150104
